FAERS Safety Report 11532879 (Version 1)
Quarter: 2015Q3

REPORT INFORMATION
  Report Type: Spontaneous
  Country: IT (occurrence: IT)
  Receive Date: 20150921
  Receipt Date: 20150921
  Transmission Date: 20151125
  Serious: Yes (Congenital Anomaly, Other)
  Sender: FDA-Public Use
  Company Number: IT-MYLANLABS-2015M1031449

PATIENT

DRUGS (1)
  1. CARBAMAZEPINE. [Suspect]
     Active Substance: CARBAMAZEPINE
     Indication: EPILEPSY
     Route: 064

REACTIONS (7)
  - Facial nerve disorder [Unknown]
  - Dysmorphism [Unknown]
  - VIIth nerve paralysis [Unknown]
  - Foetal exposure during pregnancy [Unknown]
  - Respiratory tract infection [Recovered/Resolved]
  - Congenital arterial malformation [Recovered/Resolved]
  - Atrioventricular septal defect [Recovered/Resolved]
